FAERS Safety Report 4848050-5 (Version None)
Quarter: 2005Q4

REPORT INFORMATION
  Report Type: 
  Country: None (occurrence: None)
  Receive Date: 20051207
  Receipt Date: 20051207
  Transmission Date: 20060501
  Serious: Yes (Hospitalization)
  Sender: FDA-Public Use
  Company Number: None

PATIENT
  Age: 85 Year
  Sex: Female
  Weight: 40.8237 kg

DRUGS (7)
  1. OXALIPLATIN [Suspect]
     Dosage: 85MG/M2
     Dates: start: 20051128
  2. TAXOTERE [Suspect]
     Dosage: 25MG/M2
     Dates: start: 20051128
  3. FUDR [Suspect]
     Dosage: 110MG/KG
     Dates: start: 20051128
  4. LEUCOVORIN CALCIUM [Suspect]
     Dosage: 500MG/M3
     Dates: start: 20051128
  5. ATARAX [Concomitant]
  6. EMEND [Concomitant]
  7. DECADRON [Concomitant]

REACTIONS (1)
  - CHEST PAIN [None]
